FAERS Safety Report 23404899 (Version 2)
Quarter: 2024Q1

REPORT INFORMATION
  Report Type: Spontaneous
  Country: US (occurrence: US)
  Receive Date: 20240116
  Receipt Date: 20240320
  Transmission Date: 20240410
  Serious: No
  Sender: FDA-Public Use
  Company Number: US-NOVEN PHARMACEUTICALS, INC.-2023-NOV-US001091

PATIENT
  Sex: Male
  Weight: 45.351 kg

DRUGS (1)
  1. XELSTRYM [Suspect]
     Active Substance: DEXTROAMPHETAMINE
     Indication: Attention deficit hyperactivity disorder
     Dosage: 9 MG/9 HOURS, DAILY
     Route: 062

REACTIONS (1)
  - Application site erythema [Not Recovered/Not Resolved]
